FAERS Safety Report 6211995-8 (Version None)
Quarter: 2009Q2

REPORT INFORMATION
  Report Type: 
  Country: None (occurrence: None)
  Receive Date: 20090602
  Receipt Date: 20090527
  Transmission Date: 20091009
  Serious: Yes (Hospitalization, Other)
  Sender: FDA-Public Use
  Company Number: A0787861A

PATIENT
  Age: 13 Year
  Sex: Male

DRUGS (2)
  1. LAMICTAL [Suspect]
     Indication: BIPOLAR DISORDER
     Route: 048
     Dates: start: 20040101, end: 20040101
  2. VENLAFAXINE [Concomitant]

REACTIONS (2)
  - CHRONIC HEPATITIS [None]
  - STEVENS-JOHNSON SYNDROME [None]
